FAERS Safety Report 6991868-3 (Version None)
Quarter: 2010Q3

REPORT INFORMATION
  Report Type: 
  Country: None (occurrence: None)
  Receive Date: 20100917
  Receipt Date: 20100906
  Transmission Date: 20110219
  Serious: Yes (Hospitalization)
  Sender: FDA-Public Use
  Company Number: FI-PFIZER INC-2010108702

PATIENT
  Age: 42 Year
  Sex: Male

DRUGS (11)
  1. LYRICA [Suspect]
     Indication: EPILEPSY
     Dosage: 150 MG + 150 MG + 300 MG
     Route: 048
     Dates: start: 20070823
  2. TEGRETOL [Concomitant]
     Indication: EPILEPSY
     Dosage: 200 MG + 200 MG + 400 MG
     Route: 048
     Dates: start: 20061110
  3. TOPAMAX [Concomitant]
     Indication: EPILEPSY
     Dosage: 100 MG, 2X/DAY
     Route: 048
     Dates: start: 20090203
  4. FRISIUM [Concomitant]
     Indication: EPILEPSY
     Dosage: 10 MG + 30 MG
     Route: 048
     Dates: start: 20061109
  5. VALPROATE SODIUM [Concomitant]
     Indication: EPILEPSY
     Dosage: 500 MG + 1000 MG
     Route: 048
     Dates: start: 20081008
  6. SEPRAM [Concomitant]
     Indication: DEPRESSION
     Dosage: 20 MG, 1X/DAY
     Route: 048
     Dates: start: 20080606
  7. SEPRAM [Concomitant]
     Indication: ANXIETY
  8. TEMESTA [Concomitant]
     Indication: DEPRESSION
     Dosage: 1 MG, 3X/DAY
     Route: 048
     Dates: start: 20091201
  9. TEMESTA [Concomitant]
     Indication: ANXIETY
  10. RISPERDAL [Concomitant]
     Indication: DEPRESSION
     Dosage: 0.5MG + 1.5 MG
     Route: 048
     Dates: start: 20091201
  11. RISPERDAL [Concomitant]
     Indication: ANXIETY

REACTIONS (1)
  - PLEURISY [None]
